FAERS Safety Report 10935636 (Version 3)
Quarter: 2015Q2

REPORT INFORMATION
  Report Type: Report from Study
  Country: US (occurrence: US)
  Receive Date: 20150320
  Receipt Date: 20150416
  Transmission Date: 20150821
  Serious: Yes (Death)
  Sender: FDA-Public Use
  Company Number: GXBR2015US000986

PATIENT
  Sex: Male
  Weight: 79.7 kg

DRUGS (1)
  1. ENOXAPARIN SODIUM. [Suspect]
     Active Substance: ENOXAPARIN SODIUM
     Indication: MESENTERIC VASCULAR INSUFFICIENCY
     Dosage: 90 MG, BID
     Route: 058
     Dates: start: 20141223

REACTIONS (1)
  - Malignant neoplasm progression [Fatal]
